FAERS Safety Report 23706216 (Version 1)
Quarter: 2024Q2

REPORT INFORMATION
  Report Type: Spontaneous
  Country: US (occurrence: None)
  Receive Date: 20240403
  Receipt Date: 20240403
  Transmission Date: 20240716
  Serious: Yes (Other)
  Sender: FDA-Public Use
  Company Number: None

PATIENT
  Age: 60 Year
  Sex: Female
  Weight: 90.5 kg

DRUGS (1)
  1. LEVETIRACETAM [Suspect]
     Active Substance: LEVETIRACETAM
     Indication: Seizure
     Dosage: FREQUENCY : TWICE A DAY;?
     Route: 048
     Dates: start: 20230906, end: 20240305

REACTIONS (15)
  - Anxiety [None]
  - Chills [None]
  - Cough [None]
  - Insomnia [None]
  - Respiratory rate increased [None]
  - Dizziness [None]
  - Heart rate irregular [None]
  - Tremor [None]
  - Dizziness [None]
  - Gingival bleeding [None]
  - Pruritus [None]
  - Muscle twitching [None]
  - Alopecia [None]
  - Asthenia [None]
  - Vision blurred [None]

NARRATIVE: CASE EVENT DATE: 20230906
